FAERS Safety Report 14027360 (Version 1)
Quarter: 2017Q3

REPORT INFORMATION
  Report Type: Report from Study
  Country: None (occurrence: US)
  Receive Date: 20170929
  Receipt Date: 20170929
  Transmission Date: 20171128
  Serious: Yes (Hospitalization, Other)
  Sender: FDA-Public Use
  Company Number: US-ABBVIE-17K-163-2093418-00

PATIENT
  Age: 79 Year
  Sex: Female
  Weight: 65.83 kg

DRUGS (9)
  1. PANTOPRAZOLE [Concomitant]
     Active Substance: PANTOPRAZOLE
     Indication: GASTROOESOPHAGEAL REFLUX DISEASE
  2. VITAMIN B12 [Concomitant]
     Active Substance: CYANOCOBALAMIN
     Indication: VITAMIN SUPPLEMENTATION
     Route: 050
  3. FOLIC ACID. [Concomitant]
     Active Substance: FOLIC ACID
     Indication: COLITIS ULCERATIVE
  4. VITAMIN D [Concomitant]
     Active Substance: CHOLECALCIFEROL
     Indication: VITAMIN SUPPLEMENTATION
  5. HUMIRA [Suspect]
     Active Substance: ADALIMUMAB
     Indication: COLITIS ULCERATIVE
     Route: 058
     Dates: start: 2017
  6. CALCITRIOL. [Concomitant]
     Active Substance: CALCITRIOL
     Indication: MINERAL SUPPLEMENTATION
  7. FOLIC ACID. [Concomitant]
     Active Substance: FOLIC ACID
     Indication: CROHN^S DISEASE
  8. HUMIRA [Suspect]
     Active Substance: ADALIMUMAB
     Indication: CROHN^S DISEASE
     Route: 058
     Dates: start: 2009, end: 2017
  9. HUMIRA [Suspect]
     Active Substance: ADALIMUMAB
     Indication: RHEUMATOID ARTHRITIS

REACTIONS (10)
  - Renal failure [Not Recovered/Not Resolved]
  - Pneumonia [Recovered/Resolved]
  - Gout [Not Recovered/Not Resolved]
  - Gastrointestinal stoma complication [Recovered/Resolved]
  - Dehydration [Unknown]
  - Infected fistula [Not Recovered/Not Resolved]
  - Abdominal pain [Recovered/Resolved]
  - Carbon dioxide decreased [Not Recovered/Not Resolved]
  - Feeling cold [Recovered/Resolved]
  - Hypertension [Not Recovered/Not Resolved]

NARRATIVE: CASE EVENT DATE: 2009
